FAERS Safety Report 5410751-8 (Version None)
Quarter: 2007Q3

REPORT INFORMATION
  Report Type: 
  Country: None (occurrence: None)
  Receive Date: 20070810
  Receipt Date: 20070226
  Transmission Date: 20080115
  Serious: No
  Sender: FDA-Public Use
  Company Number: A0640943A

PATIENT
  Sex: Male

DRUGS (6)
  1. PAXIL CR [Suspect]
     Indication: OBSESSIVE-COMPULSIVE DISORDER
     Dosage: 50MG PER DAY
     Route: 048
     Dates: start: 20070205
  2. ABILIFY [Concomitant]
  3. CARTIA XT [Concomitant]
  4. CRESTOR [Concomitant]
  5. PREVACID [Concomitant]
  6. ASPIRIN [Concomitant]

REACTIONS (1)
  - DRUG INEFFECTIVE [None]
